FAERS Safety Report 24333370 (Version 1)
Quarter: 2024Q3

REPORT INFORMATION
  Report Type: Spontaneous
  Country: US (occurrence: None)
  Receive Date: 20240918
  Receipt Date: 20240918
  Transmission Date: 20241017
  Serious: Yes (Hospitalization)
  Sender: Public
  Company Number: None

PATIENT
  Age: 70 Year
  Sex: Male
  Weight: 82.7 kg

DRUGS (1)
  1. APALUTAMIDE [Suspect]
     Active Substance: APALUTAMIDE
     Dates: end: 20240726

REACTIONS (5)
  - Sepsis [None]
  - Haemoglobin abnormal [None]
  - Computerised tomogram abnormal [None]
  - Pelvic abscess [None]
  - Infection [None]

NARRATIVE: CASE EVENT DATE: 20240912
